FAERS Safety Report 4700513-9 (Version None)
Quarter: 2005Q2

REPORT INFORMATION
  Report Type: 
  Country: None (occurrence: None)
  Receive Date: 20050624
  Receipt Date: 20050607
  Transmission Date: 20051028
  Serious: Yes (Hospitalization, Other)
  Sender: FDA-Public Use
  Company Number: FRWYE724007JUN05

PATIENT
  Age: 49 Year
  Sex: Female

DRUGS (6)
  1. BISOPROLOL FUMARATE [Suspect]
     Dosage: 10 MG 1X PER 1 DAY, ORAL
     Route: 048
     Dates: end: 20050412
  2. BEFIZAL (BEZAFIBRATE, , 0) [Suspect]
     Dosage: 400 MG 1X PER 1 DAY,ORAL
     Route: 048
     Dates: end: 20050412
  3. COKENZEN (CANDESARTAN CILEXETIL/HYDROCHLOROTHIAZIDE, , 0) [Suspect]
     Dosage: 1 DOSE 1X PER 1 DAY, ORAL
     Route: 048
     Dates: end: 20050412
  4. HYPERIUM (RILMENIDINE, , 0) [Suspect]
     Dosage: ORAL
     Route: 048
     Dates: end: 20050412
  5. FUROSEMIDE [Suspect]
     Dosage: ORAL
     Route: 048
     Dates: end: 20050412
  6. NEXEN (NIMESULIDE, , 0) [Suspect]
     Dosage: ORAL
     Route: 048
     Dates: start: 20050401, end: 20050412

REACTIONS (10)
  - ALANINE AMINOTRANSFERASE INCREASED [None]
  - ASPARTATE AMINOTRANSFERASE INCREASED [None]
  - BRADYCARDIA [None]
  - BRAIN NATRIURETIC PEPTIDE INCREASED [None]
  - CELL DEATH [None]
  - DIALYSIS [None]
  - HYPOTENSION [None]
  - HYPOTHERMIA [None]
  - RENAL FAILURE ACUTE [None]
  - RHABDOMYOLYSIS [None]
